FAERS Safety Report 16908547 (Version 1)
Quarter: 2019Q4

REPORT INFORMATION
  Report Type: Spontaneous
  Country: US (occurrence: US)
  Receive Date: 20191011
  Receipt Date: 20191011
  Transmission Date: 20200122
  Serious: Yes (Other)
  Sender: FDA-Public Use
  Company Number: US-AMNEAL PHARMACEUTICALS-2019-AMRX-02145

PATIENT
  Age: 12 Month
  Sex: Male

DRUGS (1)
  1. DOXYCYCLINE HYCLATE DELAYED RELEASE [Suspect]
     Active Substance: DOXYCYCLINE HYCLATE
     Indication: VENOLYMPHATIC MALFORMATION
     Dosage: 230 TO 300 MG PER DAY INJECTION
     Route: 065

REACTIONS (1)
  - Laryngeal injury [Recovered/Resolved]
